FAERS Safety Report 8280820-6 (Version None)
Quarter: 2012Q2

REPORT INFORMATION
  Report Type: 
  Country: None (occurrence: None)
  Receive Date: 20120412
  Receipt Date: 20120405
  Transmission Date: 20120825
  Serious: Yes (Other)
  Sender: FDA-Public Use
  Company Number: GB-ABBOTT-12P-167-0921855-00

PATIENT
  Age: 32 Year
  Sex: Female

DRUGS (3)
  1. MESALAMINE [Concomitant]
     Indication: PRODUCT USED FOR UNKNOWN INDICATION
     Route: 048
  2. HUMIRA [Suspect]
     Indication: CROHN'S DISEASE
     Route: 058
     Dates: start: 20100401
  3. AZATHIOPRINE [Concomitant]
     Indication: PRODUCT USED FOR UNKNOWN INDICATION
     Route: 048

REACTIONS (7)
  - FAILED INDUCTION OF LABOUR [None]
  - PREMATURE DELIVERY [None]
  - CAESAREAN SECTION [None]
  - PRURITUS [None]
  - PREGNANCY [None]
  - CHOLESTASIS [None]
  - MATERNAL EXPOSURE DURING PREGNANCY [None]
